FAERS Safety Report 4753775-6 (Version None)
Quarter: 2005Q3

REPORT INFORMATION
  Report Type: 
  Country: None (occurrence: None)
  Receive Date: 20050825
  Receipt Date: 20050808
  Transmission Date: 20060218
  Serious: Yes (Hospitalization, Other)
  Sender: FDA-Public Use
  Company Number: TRP_0109_2005

PATIENT
  Age: 43 Year
  Sex: Female
  Weight: 66.2252 kg

DRUGS (6)
  1. RIBASPHERE [Suspect]
     Indication: HEPATITIS C
     Dosage: 1000 MG QDAY PO
     Route: 048
     Dates: start: 20050302
  2. PEG-INTRON [Suspect]
     Indication: HEPATITIS C
     Dosage: DF QWK SC
     Route: 058
     Dates: start: 20050302
  3. ALCOHOL [Suspect]
     Dosage: DF QDAY PO
     Route: 048
  4. THORAZINE [Suspect]
     Indication: HALLUCINATION, AUDITORY
     Dosage: DF
  5. ASPIRIN [Concomitant]
  6. DIAZEPAM [Concomitant]

REACTIONS (6)
  - ACCIDENTAL OVERDOSE [None]
  - ALCOHOL USE [None]
  - FAMILY STRESS [None]
  - HALLUCINATION, AUDITORY [None]
  - SELF-INJURIOUS IDEATION [None]
  - SUICIDAL IDEATION [None]
